FAERS Safety Report 21529448 (Version 3)
Quarter: 2022Q4

REPORT INFORMATION
  Report Type: Other
  Country: KE (occurrence: KE)
  Receive Date: 20221031
  Receipt Date: 20221229
  Transmission Date: 20230113
  Serious: Yes (Other)
  Sender: FDA-Public Use
  Company Number: KE-002147023-NVSC2022KE216211

PATIENT
  Age: 67 Year
  Sex: Male
  Weight: 58 kg

DRUGS (4)
  1. RANIBIZUMAB [Suspect]
     Active Substance: RANIBIZUMAB
     Indication: Diabetic retinal oedema
     Dosage: 0.5 MG, QMO (VIAL)
     Route: 050
     Dates: start: 20220608
  2. RANIBIZUMAB [Suspect]
     Active Substance: RANIBIZUMAB
     Dosage: 0.5 MG, QMO(VIAL)
     Route: 047
     Dates: start: 20220622
  3. RANIBIZUMAB [Suspect]
     Active Substance: RANIBIZUMAB
     Dosage: 0.5 MG, QMO(VIAL)
     Route: 047
  4. RANIBIZUMAB [Suspect]
     Active Substance: RANIBIZUMAB
     Dosage: 0.5 MG, QMO(VIAL)
     Route: 047
     Dates: start: 20220615

REACTIONS (3)
  - Eye discharge [Recovering/Resolving]
  - Intraocular pressure increased [Recovering/Resolving]
  - Headache [Recovering/Resolving]

NARRATIVE: CASE EVENT DATE: 20220921
